FAERS Safety Report 14200115 (Version 1)
Quarter: 2017Q4

REPORT INFORMATION
  Report Type: Spontaneous
  Country: US (occurrence: US)
  Receive Date: 20171117
  Receipt Date: 20171117
  Transmission Date: 20180321
  Serious: Yes (Hospitalization, Other)
  Sender: FDA-Public Use
  Company Number: US-PFIZER INC-2017479954

PATIENT
  Age: 91 Year
  Sex: Female
  Weight: 63 kg

DRUGS (10)
  1. SUTENT [Suspect]
     Active Substance: SUNITINIB MALATE
     Dosage: 37.5 MG, CYCLIC (2 WEEKS ON 1 WEEK OFF)
     Route: 048
     Dates: start: 20160110
  2. SUTENT [Suspect]
     Active Substance: SUNITINIB MALATE
     Dosage: 37.5 MG, CYCLIC (10 DAYS ON 10 DAYS OFF)
     Route: 048
  3. SUTENT [Suspect]
     Active Substance: SUNITINIB MALATE
     Dosage: 37.5 MG, CYCLIC (10 DAYS ON 7 DAYS OFF)
     Route: 048
  4. VITAMIN D [Concomitant]
     Active Substance: CHOLECALCIFEROL
     Dosage: 2000 IU, DAILY
     Route: 048
  5. CENTRUM SILVER [Concomitant]
     Active Substance: MINERALS\VITAMINS
     Dosage: 1 DF, DAILY
     Route: 048
  6. SUTENT [Suspect]
     Active Substance: SUNITINIB MALATE
     Dosage: 37.5 MG, CYCLIC (7 DAYS ON 7  DAYS OFF)
     Route: 048
  7. TENORMIN [Concomitant]
     Active Substance: ATENOLOL
     Dosage: 50 MG, DAILY
     Route: 048
  8. KLOR-CON M10 [Concomitant]
     Active Substance: POTASSIUM CHLORIDE
     Dosage: 10 MEQ, DAILY
     Route: 048
  9. SUTENT [Suspect]
     Active Substance: SUNITINIB MALATE
     Indication: METASTATIC RENAL CELL CARCINOMA
     Dosage: 37.5 MG, DAILY (37.5 MG PO DAILY ON CONTINUOUS)
     Route: 048
     Dates: start: 20150829
  10. SUTENT [Suspect]
     Active Substance: SUNITINIB MALATE
     Dosage: 37.5 MG, CYCLIC (7 DAYS ON 14 DAYS OFF)
     Route: 048

REACTIONS (46)
  - Thrombocytopenia [Unknown]
  - Cholelithiasis [Unknown]
  - Glossodynia [Unknown]
  - Dry mouth [Unknown]
  - Condition aggravated [Unknown]
  - Body height increased [Unknown]
  - Pulmonary mass [Unknown]
  - Abdominal pain [Unknown]
  - Gastrooesophageal reflux disease [Unknown]
  - Diarrhoea [Unknown]
  - Sinus congestion [Recovering/Resolving]
  - Contusion [Unknown]
  - Fatigue [Recovering/Resolving]
  - Pain in extremity [Unknown]
  - Anaemia [Unknown]
  - Balance disorder [Recovering/Resolving]
  - Palmar-plantar erythrodysaesthesia syndrome [Unknown]
  - Peripheral swelling [Unknown]
  - Oedema peripheral [Unknown]
  - Liver function test increased [Unknown]
  - Flatulence [Unknown]
  - Lacrimation increased [Unknown]
  - Faeces soft [Unknown]
  - Alopecia [Unknown]
  - Joint swelling [Unknown]
  - Fall [Unknown]
  - Blood sodium increased [Unknown]
  - Pancytopenia [Unknown]
  - Pleural effusion [Unknown]
  - Hiatus hernia [Unknown]
  - Decreased appetite [Unknown]
  - Diarrhoea [Not Recovered/Not Resolved]
  - Stomatitis [Unknown]
  - Weight decreased [Unknown]
  - Laceration [Unknown]
  - Vomiting [Unknown]
  - Nausea [Unknown]
  - Early satiety [Unknown]
  - Dyspnoea [Unknown]
  - Weight increased [Unknown]
  - Pneumonia [Unknown]
  - Limb discomfort [Unknown]
  - Body height decreased [Unknown]
  - Blood thyroid stimulating hormone increased [Unknown]
  - Blood creatinine increased [Unknown]
  - Burning sensation [Unknown]

NARRATIVE: CASE EVENT DATE: 20150205
